FAERS Safety Report 19975197 (Version 1)
Quarter: 2021Q4

REPORT INFORMATION
  Report Type: Spontaneous
  Country: US (occurrence: US)
  Receive Date: 20211020
  Receipt Date: 20211020
  Transmission Date: 20220303
  Serious: No
  Sender: FDA-Public Use
  Company Number: US-ALLERGAN-2035559US

PATIENT
  Age: 36 Year
  Sex: Male

DRUGS (6)
  1. LINZESS [Suspect]
     Active Substance: LINACLOTIDE
     Indication: Irritable bowel syndrome
     Dosage: 72 ?G
     Route: 048
  2. LINZESS [Suspect]
     Active Substance: LINACLOTIDE
     Dosage: 145 ?G
     Route: 048
     Dates: start: 202008
  3. LINZESS [Suspect]
     Active Substance: LINACLOTIDE
     Dosage: 90 ?G
     Route: 048
     Dates: start: 202008, end: 202008
  4. IRBESARTAN [Concomitant]
     Active Substance: IRBESARTAN
     Indication: Hypertension
  5. AMLODIPINE [Concomitant]
     Active Substance: AMLODIPINE BESYLATE
     Indication: Hypertension
  6. VERAPAMIL [Concomitant]
     Active Substance: VERAPAMIL HYDROCHLORIDE
     Indication: Hypertension

REACTIONS (9)
  - Eye swelling [Recovered/Resolved]
  - Rash [Recovered/Resolved with Sequelae]
  - Erythema [Recovered/Resolved]
  - Ocular hyperaemia [Recovered/Resolved]
  - Pruritus [Recovered/Resolved]
  - Swelling face [Recovered/Resolved]
  - Incorrect dose administered [Unknown]
  - Hypersensitivity [Recovered/Resolved]
  - Drug ineffective [Unknown]

NARRATIVE: CASE EVENT DATE: 20200801
